FAERS Safety Report 5652400-X (Version None)
Quarter: 2008Q1

REPORT INFORMATION
  Report Type: 
  Country: None (occurrence: None)
  Receive Date: 20080305
  Receipt Date: 20080305
  Transmission Date: 20080703
  Serious: Yes (Other)
  Sender: FDA-Public Use
  Company Number: None

PATIENT
  Sex: Female
  Weight: 61.6892 kg

DRUGS (1)
  1. ISOSORBIDE  30MG   ETHEX   NDC# 58177-0238-04 [Suspect]
     Indication: CORONARY ARTERY DISEASE
     Dosage: 30MG  ONE PO QD PO
     Route: 048
     Dates: start: 20080213, end: 20080217

REACTIONS (2)
  - NAUSEA [None]
  - VOMITING [None]
